FAERS Safety Report 5204725-X (Version None)
Quarter: 2007Q1

REPORT INFORMATION
  Report Type: 
  Country: None (occurrence: None)
  Receive Date: 20070110
  Receipt Date: 20060627
  Transmission Date: 20070707
  Serious: Yes (Other)
  Sender: FDA-Public Use
  Company Number: US-BRISTOL-MYERS SQUIBB COMPANY-13425806

PATIENT

DRUGS (2)
  1. ABILIFY [Suspect]
  2. DEPAKOTE [Concomitant]

REACTIONS (1)
  - PANCREATITIS [None]
